FAERS Safety Report 24803979 (Version 1)
Quarter: 2025Q1

REPORT INFORMATION
  Report Type: Spontaneous
  Country: US (occurrence: US)
  Receive Date: 20250103
  Receipt Date: 20250103
  Transmission Date: 20250409
  Serious: No
  Sender: PADAGIS
  Company Number: US-PADAGIS-2024PAD01993

PATIENT

DRUGS (2)
  1. ESTRADIOL VAGINAL [Suspect]
     Active Substance: ESTRADIOL
     Indication: Vulvovaginal dryness
     Route: 065
  2. ESTRADIOL VAGINAL [Suspect]
     Active Substance: ESTRADIOL
     Indication: Pain
     Route: 065

REACTIONS (2)
  - Prescribed underdose [Unknown]
  - Product prescribing issue [Unknown]
